FAERS Safety Report 5753718-2 (Version None)
Quarter: 2008Q2

REPORT INFORMATION
  Report Type: 
  Country: None (occurrence: None)
  Receive Date: 20080530
  Receipt Date: 20080520
  Transmission Date: 20081010
  Serious: Yes (Other)
  Sender: FDA-Public Use
  Company Number: DE-SANOFI-SYNTHELABO-A04200800577

PATIENT
  Sex: Male
  Weight: 80 kg

DRUGS (3)
  1. NIASPAN [Concomitant]
     Indication: HYPERLIPIDAEMIA
     Route: 048
     Dates: start: 20000101
  2. PLAVIX [Suspect]
     Indication: CORONARY ANGIOPLASTY
     Route: 048
     Dates: start: 20071208, end: 20080107
  3. FENOFIBRAT [Suspect]
     Indication: HYPERLIPIDAEMIA
     Route: 048
     Dates: start: 20080117, end: 20080123

REACTIONS (5)
  - ARTHRITIS [None]
  - HAEMOLYTIC URAEMIC SYNDROME [None]
  - PAIN IN EXTREMITY [None]
  - PARAESTHESIA [None]
  - RENAL FAILURE [None]
